FAERS Safety Report 23069990 (Version 1)
Quarter: 2023Q4

REPORT INFORMATION
  Report Type: Spontaneous
  Country: FR (occurrence: FR)
  Receive Date: 20231016
  Receipt Date: 20231016
  Transmission Date: 20240109
  Serious: Yes (Life-Threatening)
  Sender: FDA-Public Use
  Company Number: None

PATIENT
  Age: 77 Year
  Sex: Female
  Weight: 81 kg

DRUGS (15)
  1. PAXLOVID [Suspect]
     Active Substance: NIRMATRELVIR\RITONAVIR
     Indication: COVID-19 treatment
     Dosage: [PF-07321332 300 MG]/[RITONAVIR 100 MG]; 2X/DAY
     Route: 048
     Dates: start: 20230824, end: 20230826
  2. PROPRANOLOL HYDROCHLORIDE [Concomitant]
     Active Substance: PROPRANOLOL HYDROCHLORIDE
     Dosage: UNK
     Route: 048
  3. METFORMIN HYDROCHLORIDE\VILDAGLIPTIN [Concomitant]
     Active Substance: METFORMIN HYDROCHLORIDE\VILDAGLIPTIN
     Dosage: 50 MG/1000 MG
     Route: 048
  4. SKENAN [Concomitant]
     Active Substance: MORPHINE SULFATE
     Dosage: UNK
     Route: 048
  5. KARDEGIC [Concomitant]
     Active Substance: ASPIRIN DL-LYSINE
     Dosage: UNK
     Route: 048
  6. PRAVASTATIN SODIUM [Concomitant]
     Active Substance: PRAVASTATIN SODIUM
     Dosage: UNK
     Route: 048
  7. FENTANYL [Concomitant]
     Active Substance: FENTANYL
     Dosage: 25 MICROGRAMMES/HEURE (4,2 MG/10,5 CM2)
     Route: 062
  8. ALDACTONE [Concomitant]
     Active Substance: SPIRONOLACTONE
     Dosage: UNK
     Route: 048
  9. METEOSPASMYL (ALVERINE CITRATE\DIMETHICONE) [Concomitant]
     Active Substance: ALVERINE CITRATE\DIMETHICONE
     Dosage: UNK
     Route: 048
  10. VITABACT [Concomitant]
     Active Substance: PICLOXYDINE DIHYDROCHLORIDE
     Dosage: UNK
     Route: 048
  11. LEVOTHYROXINE [Concomitant]
     Active Substance: LEVOTHYROXINE
     Dosage: UNK
     Route: 048
  12. URAPIDIL HYDROCHLORIDE [Concomitant]
     Active Substance: URAPIDIL HYDROCHLORIDE
     Dosage: UNK
     Route: 048
  13. CANDESARTAN CILEXETIL\HYDROCHLOROTHIAZIDE [Concomitant]
     Active Substance: CANDESARTAN CILEXETIL\HYDROCHLOROTHIAZIDE
     Dosage: 16 MG/12,5 MG
     Route: 048
  14. METFORMIN HYDROCHLORIDE [Concomitant]
     Active Substance: METFORMIN HYDROCHLORIDE
     Dosage: UNK
     Route: 048
  15. GLICLAZIDE [Concomitant]
     Active Substance: GLICLAZIDE
     Dosage: UNK
     Route: 048

REACTIONS (1)
  - Cerebrovascular accident [Recovered/Resolved with Sequelae]

NARRATIVE: CASE EVENT DATE: 20230825
